FAERS Safety Report 5625498-2 (Version None)
Quarter: 2008Q1

REPORT INFORMATION
  Report Type: 
  Country: None (occurrence: None)
  Receive Date: 20080208
  Receipt Date: 20071227
  Transmission Date: 20080703
  Serious: Yes (Hospitalization)
  Sender: FDA-Public Use
  Company Number: WAES 0712PRT00011

PATIENT
  Age: 57 Year
  Sex: Male

DRUGS (7)
  1. TAB RALTEGRAVIR POTASSIUM [Suspect]
     Indication: HIV TEST POSITIVE
     Dosage: PO
     Route: 048
  2. AZITHROMYCIN [Concomitant]
  3. EFAVIRENZ [Concomitant]
  4. LAMIVUDINE [Concomitant]
  5. LOPINAVIR AND RITONAVIR [Concomitant]
  6. SULFAMETHOXAZOLE AND TRIMETHOPRIM [Concomitant]
  7. ZIDOVUDINE [Concomitant]

REACTIONS (1)
  - DIARRHOEA [None]
